FAERS Safety Report 9304643 (Version 1)
Quarter: 2013Q2

REPORT INFORMATION
  Report Type: Spontaneous
  Country: US (occurrence: US)
  Receive Date: 20130523
  Receipt Date: 20130523
  Transmission Date: 20140414
  Serious: No
  Sender: FDA-Public Use
  Company Number: US-BIOGENIDEC-2013BI043739

PATIENT
  Age: 60 Year
  Sex: Female

DRUGS (12)
  1. TYSABRI [Suspect]
     Indication: MULTIPLE SCLEROSIS
     Route: 042
  2. INTERFERON BETA [Concomitant]
     Indication: MULTIPLE SCLEROSIS
  3. AZATHIOPRINE [Concomitant]
     Indication: MULTIPLE SCLEROSIS
  4. AZATHIOPRINE [Concomitant]
     Indication: MULTIPLE SCLEROSIS
     Dates: start: 20110720
  5. ASPIRIN [Concomitant]
  6. METFORMIN [Concomitant]
     Dates: end: 20110610
  7. METFORMIN [Concomitant]
     Dates: start: 20110720
  8. VERAPAMIL [Concomitant]
     Dates: end: 20110610
  9. VERAPAMIL [Concomitant]
     Dates: start: 20110720
  10. METOPROLOL SUCCINATE [Concomitant]
     Dates: start: 20110720
  11. FINGOLIMOD [Concomitant]
     Indication: MULTIPLE SCLEROSIS
     Route: 048
     Dates: start: 20110531, end: 20110610
  12. TOPROL XL [Concomitant]
     Dates: end: 20110610

REACTIONS (6)
  - Macular oedema [Recovered/Resolved]
  - Muscular weakness [Unknown]
  - Hypoaesthesia [Unknown]
  - Vision blurred [Unknown]
  - Blindness [Unknown]
  - Headache [Unknown]
